FAERS Safety Report 17699209 (Version 2)
Quarter: 2020Q2

REPORT INFORMATION
  Report Type: Spontaneous
  Country: US (occurrence: US)
  Receive Date: 20200423
  Receipt Date: 20200518
  Transmission Date: 20200714
  Serious: No
  Sender: FDA-Public Use
  Company Number: US-NXDC-GLE-0024-2020

PATIENT
  Age: 48 Year
  Sex: Male
  Weight: 95.6 kg

DRUGS (7)
  1. MANNITOL. [Concomitant]
     Active Substance: MANNITOL
     Dosage: 100G, 500 ML/HR, IV, ONCE
     Route: 042
  2. VANCOMYCIN [Concomitant]
     Active Substance: VANCOMYCIN
     Dosage: 1,000 MG, 250 ML, 250 ML/HR, IVPB, Q 12 HR
     Route: 041
  3. DEXAMETHASONE. [Concomitant]
     Active Substance: DEXAMETHASONE
     Dosage: 4 MG, 1 TAB, PO, QAM
     Route: 048
  4. LIDOCAINE. [Concomitant]
     Active Substance: LIDOCAINE
     Dosage: 1 ML, SUBQ, PRN
     Route: 058
  5. KEPPRA [Concomitant]
     Active Substance: LEVETIRACETAM
     Dosage: KEPPRA: 1,000 MG, 100 ML, 200 ML/HR, IVPB, ONCE
  6. GLEOLAN [Suspect]
     Active Substance: AMINOLEVULINIC ACID HYDROCHLORIDE
     Indication: PHOTODYNAMIC DIAGNOSTIC PROCEDURE
     Dates: start: 20200401, end: 20200401
  7. PLASMA-LYTE [Concomitant]
     Active Substance: ELECTROLYTES NOS
     Dosage: 1,000 ML, 10 ML/HR, IV

REACTIONS (2)
  - Drug ineffective [Unknown]
  - Underdose [Unknown]

NARRATIVE: CASE EVENT DATE: 20200401
